FAERS Safety Report 19173778 (Version 1)
Quarter: 2021Q2

REPORT INFORMATION
  Report Type: Spontaneous
  Country: DE (occurrence: DE)
  Receive Date: 20210423
  Receipt Date: 20210423
  Transmission Date: 20210717
  Serious: Yes (Other)
  Sender: FDA-Public Use
  Company Number: DE-TEVA-2021-DE-1903505

PATIENT
  Sex: Female

DRUGS (2)
  1. PFIZER?BIONTECH COVID?19 VACCINE [Suspect]
     Active Substance: TOZINAMERAN
     Indication: COVID-19 IMMUNISATION
     Dosage: TWO TIMES
     Dates: start: 2021, end: 20210323
  2. COPAXONE [Suspect]
     Active Substance: GLATIRAMER ACETATE
     Indication: MULTIPLE SCLEROSIS

REACTIONS (3)
  - Injection site pain [Not Recovered/Not Resolved]
  - Injection site abscess [Not Recovered/Not Resolved]
  - Abscess rupture [Not Recovered/Not Resolved]

NARRATIVE: CASE EVENT DATE: 202104
